FAERS Safety Report 15495233 (Version 1)
Quarter: 2018Q4

REPORT INFORMATION
  Report Type: Spontaneous
  Country: US (occurrence: US)
  Receive Date: 20181012
  Receipt Date: 20181012
  Transmission Date: 20190205
  Serious: Yes (Hospitalization)
  Sender: FDA-Public Use
  Company Number: None

PATIENT
  Age: 68 Year
  Sex: Female
  Weight: 85.5 kg

DRUGS (1)
  1. XIIDRA [Suspect]
     Active Substance: LIFITEGRAST
     Indication: DRY EYE
     Dosage: ?          QUANTITY:1 DROP(S);?
     Route: 047
     Dates: start: 20180827, end: 20181003

REACTIONS (9)
  - Diarrhoea [None]
  - Anaphylactic shock [None]
  - Vision blurred [None]
  - Pharyngeal oedema [None]
  - Erythema [None]
  - Dizziness [None]
  - Ocular hyperaemia [None]
  - Mouth swelling [None]
  - Vomiting [None]

NARRATIVE: CASE EVENT DATE: 20181003
